FAERS Safety Report 7671682-6 (Version None)
Quarter: 2011Q3

REPORT INFORMATION
  Report Type: 
  Country: None (occurrence: None)
  Receive Date: 20110809
  Receipt Date: 20110802
  Transmission Date: 20111222
  Serious: Yes (Other)
  Sender: FDA-Public Use
  Company Number: CHPA2011US10227

PATIENT
  Sex: Female

DRUGS (4)
  1. EXCEDRIN (MIGRAINE) [Suspect]
     Dosage: UNK DF, UNK
     Route: 048
  2. EXCEDRIN (MIGRAINE) [Suspect]
     Dosage: UNK DF, UNK
     Route: 048
  3. ALCOHOL [Suspect]
     Dosage: UNK, UNK
  4. EXCEDRIN (MIGRAINE) [Suspect]
     Dosage: UNK DF, UNK
     Route: 048

REACTIONS (10)
  - GASTROOESOPHAGEAL REFLUX DISEASE [None]
  - THERAPEUTIC RESPONSE UNEXPECTED [None]
  - INTENTIONAL DRUG MISUSE [None]
  - ULCER [None]
  - HERPES ZOSTER [None]
  - IRRITABLE BOWEL SYNDROME [None]
  - RIB FRACTURE [None]
  - GASTRIC ULCER [None]
  - DYSPHAGIA [None]
  - OFF LABEL USE [None]
